FAERS Safety Report 13104059 (Version 3)
Quarter: 2017Q2

REPORT INFORMATION
  Report Type: Report from Study
  Country: US (occurrence: US)
  Receive Date: 20170111
  Receipt Date: 20170530
  Transmission Date: 20170830
  Serious: No
  Sender: FDA-Public Use
  Company Number: US-AMGEN-USASL2017002847

PATIENT
  Age: 58 Year
  Sex: Female

DRUGS (2)
  1. SORIATANE [Concomitant]
     Active Substance: ACITRETIN
     Dosage: UNK
  2. ENBREL [Suspect]
     Active Substance: ETANERCEPT
     Indication: PSORIASIS
     Dosage: 50 MG, TWICE WEEKLY 72-96 HRS APART
     Route: 058
     Dates: start: 20160726

REACTIONS (3)
  - Psoriasis [Unknown]
  - Stress [Unknown]
  - Off label use [Unknown]

NARRATIVE: CASE EVENT DATE: 20160726
